FAERS Safety Report 21470720 (Version 3)
Quarter: 2023Q1

REPORT INFORMATION
  Report Type: Spontaneous
  Country: US (occurrence: US)
  Receive Date: 20221018
  Receipt Date: 20230106
  Transmission Date: 20230417
  Serious: No
  Sender: FDA-Public Use
  Company Number: US-Vifor (International) Inc.-VIT-2022-06904

PATIENT
  Age: 85 Year
  Sex: Female
  Weight: 59 kg

DRUGS (12)
  1. MIRCERA [Suspect]
     Active Substance: METHOXY POLYETHYLENE GLYCOL-EPOETIN BETA
     Indication: End stage renal disease
     Dosage: RECEIVED MIRCERA MORE THAN 10 TIMES IN PAST 22 MONTHS
     Route: 058
     Dates: start: 202101, end: 20221021
  2. ALLOPURINOL [Concomitant]
     Active Substance: ALLOPURINOL
     Indication: Gout
     Route: 048
  3. CALCITRIOL [Concomitant]
     Active Substance: CALCITRIOL
     Dosage: 1 CAPSULE AS DIRECTED, EVERY 5 DAYS PER WEEK
     Route: 048
  4. COLACE [Concomitant]
     Active Substance: DOCUSATE SODIUM
     Route: 048
  5. GENTAMICIN [Concomitant]
     Active Substance: GENTAMICIN
     Dosage: 1%, APPLY A SMALL AMOUNT TO PD EXIT SITE ONCE A DAY
     Route: 061
  6. HYDROXYZINE HYDROCHLORIDE [Concomitant]
     Active Substance: HYDROXYZINE HYDROCHLORIDE
     Dosage: 1 TABLET AT BEDTIME
     Route: 048
  7. LEVOTHYROXINE [Concomitant]
     Active Substance: LEVOTHYROXINE
     Dosage: 1 TABLET
     Route: 048
  8. NEURONTIN [GABAPENTIN] [Concomitant]
     Indication: Pain
     Dosage: CAN TAKE UP TO 2 CAPSULE WITH PAIN AT BEDTIME. NO MORE THAN 3 CAPSULE PER DAY
     Route: 048
  9. POLYETHYLENE GLYCOL 3350 [Concomitant]
     Active Substance: POLYETHYLENE GLYCOL 3350
     Indication: Constipation
     Dosage: 1 PACKET AS NEEDED
     Route: 048
  10. PRAVASTATIN [Concomitant]
     Active Substance: PRAVASTATIN
     Dosage: 1 TABLET AT BEDTIME
     Route: 048
  11. RENAPLEX D [Concomitant]
     Indication: Vitamin supplementation
     Dosage: 800 MCG - 12.5 M, 1 TABLET, ONCE A DAY
     Route: 048
  12. AURYXIA [Concomitant]
     Active Substance: TETRAFERRIC TRICITRATE DECAHYDRATE
     Dosage: 1 TABLET 3 TIMES A DAY
     Route: 048

REACTIONS (3)
  - Drug hypersensitivity [Recovered/Resolved]
  - Pain [Recovered/Resolved]
  - Blood pressure abnormal [Recovered/Resolved]

NARRATIVE: CASE EVENT DATE: 20220921
